FAERS Safety Report 4299975-3 (Version None)
Quarter: 2004Q1

REPORT INFORMATION
  Report Type: 
  Country: None (occurrence: None)
  Receive Date: 20040218
  Receipt Date: 20040203
  Transmission Date: 20041129
  Serious: Yes (Hospitalization, Other)
  Sender: FDA-Public Use
  Company Number: JP_030801653

PATIENT
  Age: 81 Year
  Sex: Male

DRUGS (3)
  1. HUMULIN-HUMAN NPH INSULIN (RDNA) (HUMAN INSULIN (RD [Suspect]
     Indication: DIABETES MELLITUS
     Dosage: UNK
     Route: 065
  2. NPH INSULIN [Concomitant]
  3. LENTE INSULIN [Concomitant]

REACTIONS (5)
  - ANTIBODY TEST ABNORMAL [None]
  - CEREBRAL INFARCTION [None]
  - DIABETES MELLITUS INADEQUATE CONTROL [None]
  - LIPOATROPHY [None]
  - PARALYSIS [None]
